FAERS Safety Report 14780318 (Version 2)
Quarter: 2019Q1

REPORT INFORMATION
  Report Type: Report from Study
  Country: JP (occurrence: JP)
  Receive Date: 20180419
  Receipt Date: 20190301
  Transmission Date: 20190417
  Serious: Yes (Hospitalization, Other)
  Sender: FDA-Public Use
  Company Number: JP-MYLANLABS-2018M1025331

PATIENT
  Age: 65 Year
  Sex: Male

DRUGS (11)
  1. LEVETIRACETAM. [Suspect]
     Active Substance: LEVETIRACETAM
     Indication: STATUS EPILEPTICUS
     Dosage: 3000 MILLIGRAM, QD
     Route: 065
  2. TOPIRAMATE. [Suspect]
     Active Substance: TOPIRAMATE
     Indication: STATUS EPILEPTICUS
     Dosage: 500 MILLIGRAM, QD
     Route: 065
  3. THIOPENTAL [Concomitant]
     Active Substance: THIOPENTAL
     Indication: GENERAL ANAESTHESIA
     Dosage: UNK
     Route: 042
  4. IMMUNOGLOBULIN                     /00025201/ [Concomitant]
     Active Substance: HUMAN IMMUNOGLOBULIN G
     Indication: PRODUCT USED FOR UNKNOWN INDICATION
     Route: 042
  5. CLOBAZAM. [Concomitant]
     Active Substance: CLOBAZAM
     Indication: STATUS EPILEPTICUS
     Route: 065
  6. MIDAZOLAM [Concomitant]
     Active Substance: MIDAZOLAM HYDROCHLORIDE
     Indication: GENERAL ANAESTHESIA
     Dosage: UNK
     Route: 042
  7. PERAMPANEL [Suspect]
     Active Substance: PERAMPANEL
     Indication: STATUS EPILEPTICUS
     Dosage: 8 MILLIGRAM, QD
     Route: 065
  8. METHYLPREDNISOLONE. [Concomitant]
     Active Substance: METHYLPREDNISOLONE
     Indication: PRODUCT USED FOR UNKNOWN INDICATION
     Dosage: UNK
     Route: 042
  9. PROPOFOL. [Concomitant]
     Active Substance: PROPOFOL
     Indication: GENERAL ANAESTHESIA
     Dosage: UNK
     Route: 042
  10. PHENYTOIN. [Suspect]
     Active Substance: PHENYTOIN
     Indication: STATUS EPILEPTICUS
     Dosage: 300 MILLIGRAM, QD
     Route: 065
  11. STIRIPENTOL [Concomitant]
     Active Substance: STIRIPENTOL
     Indication: STATUS EPILEPTICUS
     Dosage: 2000 MG PER DAY
     Route: 065

REACTIONS (5)
  - Therapeutic product cross-reactivity [Unknown]
  - Pyrexia [Unknown]
  - Eosinophilia [Unknown]
  - Drug reaction with eosinophilia and systemic symptoms [Unknown]
  - Hepatitis [Unknown]
